FAERS Safety Report 13034217 (Version 1)
Quarter: 2016Q4

REPORT INFORMATION
  Report Type: Spontaneous
  Country: US (occurrence: US)
  Receive Date: 20161215
  Receipt Date: 20161215
  Transmission Date: 20170207
  Serious: Yes (Disabling, Other)
  Sender: FDA-Public Use
  Company Number: None

PATIENT
  Age: 94 Year
  Sex: Female
  Weight: 56.25 kg

DRUGS (3)
  1. IMIQUIMOD CREAM 5% [Suspect]
     Active Substance: IMIQUIMOD
     Indication: SQUAMOUS CELL CARCINOMA
     Dosage: ?          OTHER FREQUENCY:3 TIMES PER WEEK;?
     Route: 061
     Dates: start: 20161018, end: 20161117
  2. MAGNESIUM SUPPLEMENT [Concomitant]
  3. DIGOXIN. [Concomitant]
     Active Substance: DIGOXIN

REACTIONS (7)
  - Mental status changes [None]
  - Cognitive disorder [None]
  - Application site reaction [None]
  - Listless [None]
  - Judgement impaired [None]
  - Confusional state [None]
  - Memory impairment [None]

NARRATIVE: CASE EVENT DATE: 20161101
